FAERS Safety Report 6691868-7 (Version None)
Quarter: 2010Q2

REPORT INFORMATION
  Report Type: 
  Country: None (occurrence: None)
  Receive Date: 20100422
  Receipt Date: 20100413
  Transmission Date: 20101027
  Serious: Yes (Other)
  Sender: FDA-Public Use
  Company Number: US-PFIZER INC-2010046071

PATIENT
  Sex: Male
  Weight: 77.098 kg

DRUGS (8)
  1. BLINDED *NO SUBJECT DRUG [Suspect]
     Indication: ACQUIRED IMMUNODEFICIENCY SYNDROME
     Dosage: UNK
     Route: 048
     Dates: start: 20051122, end: 20080521
  2. BLINDED *PLACEBO [Suspect]
     Indication: ACQUIRED IMMUNODEFICIENCY SYNDROME
     Dosage: UNK
     Route: 048
     Dates: start: 20051122, end: 20080521
  3. BLINDED MARAVIROC [Suspect]
     Indication: ACQUIRED IMMUNODEFICIENCY SYNDROME
     Dosage: UNK
     Route: 048
     Dates: start: 20051122, end: 20080521
  4. RALTEGRAVIR [Concomitant]
     Dosage: UNK
     Route: 048
     Dates: start: 20080521
  5. DARUNAVIR [Concomitant]
     Dosage: UNK
     Route: 048
     Dates: start: 20080521
  6. RITONAVIR [Concomitant]
     Dosage: UNK
     Route: 048
     Dates: start: 20080521
  7. ETRAVIRINE [Concomitant]
     Dosage: UNK
     Route: 048
     Dates: start: 20080521
  8. DAPSONE [Concomitant]
     Dosage: UNK
     Route: 048

REACTIONS (1)
  - SQUAMOUS CELL CARCINOMA OF SKIN [None]
